FAERS Safety Report 11378992 (Version 1)
Quarter: 2015Q3

REPORT INFORMATION
  Report Type: Spontaneous
  Country: GB (occurrence: None)
  Receive Date: 20150812
  Receipt Date: 20150812
  Transmission Date: 20151125
  Serious: Yes (Disabling)
  Sender: FDA-Public Use
  Company Number: 2015RR-101350

PATIENT
  Age: 46 Year
  Sex: Female
  Weight: 69.8 kg

DRUGS (1)
  1. FLUOXETINE (FLUOXETINE) UNKNOWN [Suspect]
     Active Substance: FLUOXETINE HYDROCHLORIDE
     Indication: OBSESSIVE-COMPULSIVE DISORDER
     Dosage: INCREASED OVER TIME
     Route: 048
     Dates: start: 1995, end: 2014

REACTIONS (4)
  - Tinnitus [None]
  - Vertigo [None]
  - Deafness [None]
  - Depression [None]

NARRATIVE: CASE EVENT DATE: 1999
